FAERS Safety Report 24593344 (Version 3)
Quarter: 2025Q2

REPORT INFORMATION
  Report Type: Report from Study
  Country: US (occurrence: US)
  Receive Date: 20241108
  Receipt Date: 20250612
  Transmission Date: 20250716
  Serious: Yes (Hospitalization)
  Sender: GILEAD
  Company Number: US-GILEAD-2024-0693301

PATIENT
  Age: 8 Year
  Sex: Male

DRUGS (3)
  1. AMBRISENTAN [Suspect]
     Active Substance: AMBRISENTAN
     Indication: Pulmonary arterial hypertension
     Dosage: 5 MG, QD
     Route: 048
     Dates: start: 20220407
  2. UPTRAVI [Concomitant]
     Active Substance: SELEXIPAG
  3. TADALAFIL [Concomitant]
     Active Substance: TADALAFIL

REACTIONS (3)
  - Back disorder [Unknown]
  - Infection [Unknown]
  - Off label use [Not Recovered/Not Resolved]
